FAERS Safety Report 16688011 (Version 1)
Quarter: 2019Q3

REPORT INFORMATION
  Report Type: Spontaneous
  Country: US (occurrence: US)
  Receive Date: 20190809
  Receipt Date: 20190809
  Transmission Date: 20191004
  Serious: Yes (Death, Other)
  Sender: FDA-Public Use
  Company Number: US-SA-2019SA209072

PATIENT
  Age: 81 Year
  Sex: Female

DRUGS (1)
  1. GOLD BOND ORIGINAL STRENGTH POWDER [Suspect]
     Active Substance: MENTHOL\ZINC OXIDE
     Route: 055

REACTIONS (5)
  - Loss of personal independence in daily activities [Unknown]
  - Mental disorder [Unknown]
  - Pain [Unknown]
  - Mesothelioma [Fatal]
  - Occupational exposure to product [Fatal]

NARRATIVE: CASE EVENT DATE: 20160707
